FAERS Safety Report 4545112-7 (Version None)
Quarter: 2005Q1

REPORT INFORMATION
  Report Type: 
  Country: None (occurrence: None)
  Receive Date: 20050103
  Receipt Date: 20041221
  Transmission Date: 20050727
  Serious: Yes (Hospitalization, Disabling)
  Sender: FDA-Public Use
  Company Number: 2004116319

PATIENT
  Age: 43 Year
  Sex: Male

DRUGS (1)
  1. CELEBREX [Suspect]
     Indication: ARTHRITIS
     Dosage: 400 MG (200 MG, 2 IN 1 D)
     Dates: start: 19990101

REACTIONS (7)
  - BLOOD CHOLESTEROL DECREASED [None]
  - CARDIAC FAILURE [None]
  - CARDIOMEGALY [None]
  - IMPAIRED WORK ABILITY [None]
  - MALAISE [None]
  - OEDEMA PERIPHERAL [None]
  - PULMONARY OEDEMA [None]
